FAERS Safety Report 5767369-7 (Version None)
Quarter: 2008Q2

REPORT INFORMATION
  Report Type: 
  Country: None (occurrence: None)
  Receive Date: 20080612
  Receipt Date: 20080603
  Transmission Date: 20081010
  Serious: Yes (Other)
  Sender: FDA-Public Use
  Company Number: B0360879A

PATIENT
  Age: 24 Year
  Sex: Female

DRUGS (6)
  1. PAROXETINE HCL [Suspect]
     Route: 065
     Dates: start: 19961206
  2. SOLPADOL [Concomitant]
     Route: 065
  3. AMITRIPTYLINE HCL [Concomitant]
     Dates: start: 19960723
  4. NEFAZODONE HCL [Concomitant]
     Dates: start: 19960927
  5. GAMANIL [Concomitant]
     Dates: start: 19961011
  6. PROZAC [Concomitant]
     Dates: start: 20030804

REACTIONS (28)
  - AGGRESSION [None]
  - AGITATION [None]
  - AMNESIA [None]
  - ANGER [None]
  - CARDIAC DISORDER [None]
  - CONFUSIONAL STATE [None]
  - CRYING [None]
  - DISTURBANCE IN ATTENTION [None]
  - DIZZINESS [None]
  - DYSPEPSIA [None]
  - FATIGUE [None]
  - HEADACHE [None]
  - HYPERHIDROSIS [None]
  - HYPERVENTILATION [None]
  - HYPOAESTHESIA [None]
  - LOSS OF CONSCIOUSNESS [None]
  - MAGNESIUM DEFICIENCY [None]
  - NAUSEA [None]
  - NIGHTMARE [None]
  - PAIN [None]
  - PANIC ATTACK [None]
  - PARAESTHESIA [None]
  - RASH [None]
  - SLEEP DISORDER [None]
  - TREMOR [None]
  - VERTIGO [None]
  - VISUAL DISTURBANCE [None]
  - WITHDRAWAL SYNDROME [None]
